FAERS Safety Report 21667426 (Version 1)
Quarter: 2022Q4

REPORT INFORMATION
  Report Type: Spontaneous
  Country: TR (occurrence: TR)
  Receive Date: 20221201
  Receipt Date: 20221201
  Transmission Date: 20230113
  Serious: Yes (Hospitalization)
  Sender: FDA-Public Use
  Company Number: TR-MYLANLABS-2022M1134210

PATIENT
  Age: 14 Year
  Sex: Male

DRUGS (4)
  1. SERTRALINE [Suspect]
     Active Substance: SERTRALINE HYDROCHLORIDE
     Indication: Depression
     Dosage: UNK
     Route: 065
  2. ARIPIPRAZOLE [Suspect]
     Active Substance: ARIPIPRAZOLE
     Indication: Depression
     Dosage: 5 MILLIGRAM
     Route: 065
  3. EXENATIDE [Suspect]
     Active Substance: EXENATIDE
     Indication: Type 2 diabetes mellitus
     Dosage: 5 MICROGRAM, QD
     Route: 065
  4. EXENATIDE [Suspect]
     Active Substance: EXENATIDE
     Dosage: 10 MICROGRAM, QD
     Route: 065

REACTIONS (1)
  - Drug ineffective [Unknown]
